FAERS Safety Report 7133145-6 (Version None)
Quarter: 2010Q4

REPORT INFORMATION
  Report Type: 
  Country: None (occurrence: None)
  Receive Date: 20101202
  Receipt Date: 20101119
  Transmission Date: 20110411
  Serious: Yes (Hospitalization, Other)
  Sender: FDA-Public Use
  Company Number: US-ELI_LILLY_AND_COMPANY-US201001001011

PATIENT
  Sex: Female

DRUGS (13)
  1. FORTEO [Suspect]
     Indication: OSTEOPOROSIS
     Dosage: 20 UG, DAILY (1/D)
     Dates: start: 20091103, end: 20100831
  2. VALIUM [Concomitant]
  3. SOMA [Concomitant]
  4. HYDROCODONE [Concomitant]
  5. BUPROPION [Concomitant]
  6. FAMOTIDINE [Concomitant]
  7. QUINAPRIL [Concomitant]
  8. ISOSORBIDE DINITRATE [Concomitant]
  9. AMLODIPINE BESYLATE [Concomitant]
  10. CALCIUM CITRATE [Concomitant]
  11. POTASSIUM CHLORIDE [Concomitant]
  12. CHEMOTHERAPEUTICS [Concomitant]
  13. VITAMIN D [Concomitant]

REACTIONS (5)
  - BRAIN NEOPLASM MALIGNANT [None]
  - HEPATIC NEOPLASM MALIGNANT [None]
  - HYPOTENSION [None]
  - INCREASED APPETITE [None]
  - SMALL CELL LUNG CANCER STAGE UNSPECIFIED [None]
